FAERS Safety Report 6771580-6 (Version None)
Quarter: 2010Q2

REPORT INFORMATION
  Report Type: 
  Country: None (occurrence: None)
  Receive Date: 20100616
  Receipt Date: 20100603
  Transmission Date: 20101027
  Serious: Yes (Other)
  Sender: FDA-Public Use
  Company Number: PHHY2010US31786

PATIENT
  Age: 66 Year
  Sex: Female

DRUGS (2)
  1. FEMARA [Suspect]
     Indication: BREAST CANCER
     Dosage: 2.5 MG, QD
     Route: 048
     Dates: start: 20100408, end: 20100513
  2. FEMARA [Suspect]
     Dosage: UNK
     Dates: start: 20100519

REACTIONS (2)
  - ERYTHEMA [None]
  - LIP SWELLING [None]
